FAERS Safety Report 13571748 (Version 1)
Quarter: 2017Q2

REPORT INFORMATION
  Report Type: Spontaneous
  Country: GB (occurrence: GB)
  Receive Date: 20170523
  Receipt Date: 20170523
  Transmission Date: 20170830
  Serious: Yes (Death, Hospitalization, Other)
  Sender: FDA-Public Use
  Company Number: GB-009507513-1705GBR009295

PATIENT
  Age: 62 Year
  Sex: Male

DRUGS (4)
  1. PEMBROLIZUMAB. [Suspect]
     Active Substance: PEMBROLIZUMAB
     Dosage: UNK, THIRD INFUSION
     Route: 042
     Dates: end: 20170419
  2. PEMBROLIZUMAB. [Suspect]
     Active Substance: PEMBROLIZUMAB
     Dosage: UNK, SECOND INFUSION
     Route: 042
     Dates: end: 20170419
  3. PEMBROLIZUMAB. [Suspect]
     Active Substance: PEMBROLIZUMAB
     Indication: NON-SMALL CELL LUNG CANCER METASTATIC
     Dosage: UNK, LAST INFUSION
     Route: 042
     Dates: end: 20170419
  4. PEMBROLIZUMAB. [Suspect]
     Active Substance: PEMBROLIZUMAB
     Dosage: UNK, FIRST CYCLE
     Route: 042

REACTIONS (5)
  - Lower respiratory tract infection [Unknown]
  - Dyspnoea [Unknown]
  - Oesophageal neoplasm [Unknown]
  - Death [Fatal]
  - Cough [Unknown]

NARRATIVE: CASE EVENT DATE: 2017
